FAERS Safety Report 4719422-4 (Version None)
Quarter: 2005Q3

REPORT INFORMATION
  Report Type: 
  Country: None (occurrence: None)
  Receive Date: 20050721
  Receipt Date: 20050630
  Transmission Date: 20060218
  Serious: No
  Sender: FDA-Public Use
  Company Number: US-BRISTOL-MYERS SQUIBB COMPANY-13021688

PATIENT

DRUGS (1)
  1. ESTRACE [Suspect]

REACTIONS (1)
  - ARTHROPATHY [None]
